FAERS Safety Report 10401632 (Version 1)
Quarter: 2014Q3

REPORT INFORMATION
  Report Type: Spontaneous
  Country: FR (occurrence: FR)
  Receive Date: 20140822
  Receipt Date: 20140822
  Transmission Date: 20150326
  Serious: Yes (Life-Threatening, Hospitalization)
  Sender: FDA-Public Use
  Company Number: FR-TEVA-501930ISR

PATIENT
  Age: 59 Year
  Sex: Male

DRUGS (8)
  1. ELISOR [Concomitant]
     Active Substance: PRAVASTATIN SODIUM
  2. METFORMINE [Suspect]
     Active Substance: METFORMIN HYDROCHLORIDE
     Indication: TYPE 2 DIABETES MELLITUS
     Route: 048
     Dates: end: 20080526
  3. DIAMICRON 30 MG [Concomitant]
     Indication: TYPE 2 DIABETES MELLITUS
  4. IBUPROFENE [Suspect]
     Active Substance: IBUPROFEN
     Indication: PNEUMONIA
     Route: 048
     Dates: start: 20080518, end: 20080522
  5. MONONAXY [Suspect]
     Active Substance: CLARITHROMYCIN
     Indication: PNEUMONIA
     Dates: start: 20080518, end: 20080522
  6. PLAVIX [Concomitant]
     Active Substance: CLOPIDOGREL BISULFATE
  7. PARACETAMOL [Suspect]
     Active Substance: ACETAMINOPHEN
     Indication: PNEUMONIA
     Dates: start: 20080518, end: 20080522
  8. FERVEX [Suspect]
     Active Substance: ACETAMINOPHEN\ASCORBIC ACID\PHENIRAMINE MALEATE
     Indication: PNEUMONIA
     Dates: start: 20080518, end: 20080522

REACTIONS (2)
  - Metabolic acidosis [Recovered/Resolved]
  - Renal failure acute [Recovering/Resolving]

NARRATIVE: CASE EVENT DATE: 200805
